FAERS Safety Report 17177585 (Version 1)
Quarter: 2019Q4

REPORT INFORMATION
  Report Type: Spontaneous
  Country: US (occurrence: US)
  Receive Date: 20191219
  Receipt Date: 20191219
  Transmission Date: 20200122
  Serious: Yes (Hospitalization, Other)
  Sender: FDA-Public Use
  Company Number: US-ACCORD-165896

PATIENT
  Age: 16 Year
  Sex: Male

DRUGS (2)
  1. INFLIXIMAB [Suspect]
     Active Substance: INFLIXIMAB
     Indication: ENTEROCOLITIS
  2. METHOTREXATE. [Suspect]
     Active Substance: METHOTREXATE
     Indication: ENTEROCOLITIS
     Dosage: WEANED TO 5 MG BY 2016
     Route: 048
     Dates: end: 2017

REACTIONS (2)
  - Off label use [Unknown]
  - Cutaneous lymphoma [Recovered/Resolved]
